FAERS Safety Report 18665237 (Version 2)
Quarter: 2021Q1

REPORT INFORMATION
  Report Type: Report from Study
  Country: US (occurrence: US)
  Receive Date: 20201225
  Receipt Date: 20210106
  Transmission Date: 20210419
  Serious: Yes (Other)
  Sender: FDA-Public Use
  Company Number: US-ASTRAZENECA-2020SF71109

PATIENT
  Age: 563 Month
  Sex: Female

DRUGS (1)
  1. TAGRISSO [Suspect]
     Active Substance: OSIMERTINIB
     Indication: NON-SMALL CELL LUNG CANCER STAGE IV
     Dosage: DAILY
     Route: 048
     Dates: start: 201912

REACTIONS (5)
  - Cough [Unknown]
  - Oesophageal pain [Unknown]
  - Fatigue [Unknown]
  - Metastases to the mediastinum [Unknown]
  - Diarrhoea [Recovering/Resolving]

NARRATIVE: CASE EVENT DATE: 201912
